FAERS Safety Report 8809046 (Version 3)
Quarter: 2014Q2

REPORT INFORMATION
  Report Type: Spontaneous
  Country: US (occurrence: US)
  Receive Date: 20120926
  Receipt Date: 20140425
  Transmission Date: 20141212
  Serious: Yes (Other)
  Sender: FDA-Public Use
  Company Number: US-PFIZER INC-2012236668

PATIENT
  Age: 85 Year
  Sex: Female

DRUGS (7)
  1. ZOCOR [Concomitant]
     Dosage: 40 MG, UNK
  2. LYRICA [Suspect]
     Dosage: 50 MG, 1X/DAY
     Route: 048
  3. NITRO [Concomitant]
     Dosage: 0.4 MG(PRN), AS NEEDED
  4. HYDROCODONE [Concomitant]
     Dosage: UNK (5/325 PRN) AS NEEDED
  5. OMEPRAZOLE [Concomitant]
     Dosage: 20 MG, UNK
  6. ATENOLOL [Concomitant]
     Dosage: 25 MG, UNK
  7. AMITRIPTYLINE [Concomitant]
     Dosage: 25 MG, UNK

REACTIONS (2)
  - Product label issue [Unknown]
  - Hypoacusis [Unknown]
